FAERS Safety Report 10958579 (Version 1)
Quarter: 2015Q1

REPORT INFORMATION
  Report Type: Spontaneous
  Country: US (occurrence: US)
  Receive Date: 20150326
  Receipt Date: 20150326
  Transmission Date: 20150721
  Serious: No
  Sender: FDA-Public Use
  Company Number: US-GLAXOSMITHKLINE-US2015GSK040296

PATIENT
  Age: 56 Year
  Sex: Male

DRUGS (1)
  1. PROMACTA [Suspect]
     Active Substance: ELTROMBOPAG OLAMINE
     Indication: APLASTIC ANAEMIA
     Dosage: 12.5 MG, QD
     Dates: start: 20150225

REACTIONS (3)
  - Nausea [Unknown]
  - Gastroenteritis viral [Unknown]
  - Pruritus [Unknown]

NARRATIVE: CASE EVENT DATE: 201503
